FAERS Safety Report 6282449-8 (Version None)
Quarter: 2009Q3

REPORT INFORMATION
  Report Type: 
  Country: None (occurrence: None)
  Receive Date: 20090724
  Receipt Date: 20090714
  Transmission Date: 20100115
  Serious: Yes (Other)
  Sender: FDA-Public Use
  Company Number: US-ROCHE-643798

PATIENT
  Age: 43 Year
  Sex: Male

DRUGS (8)
  1. TAMIFLU [Suspect]
     Route: 065
     Dates: start: 20090711
  2. TAMIFLU [Suspect]
     Dosage: DOSE REDUCED
     Route: 065
  3. VORICONAZOLE [Concomitant]
  4. DOCUSATE [Concomitant]
  5. FILGRASTIM [Concomitant]
  6. ENTECAVIR [Concomitant]
  7. IMIPENEM [Concomitant]
  8. ACYCLOVIR [Concomitant]

REACTIONS (2)
  - CONFUSIONAL STATE [None]
  - RESPIRATORY DISORDER [None]
